FAERS Safety Report 25540468 (Version 3)
Quarter: 2025Q3

REPORT INFORMATION
  Report Type: Spontaneous
  Country: CN (occurrence: CN)
  Receive Date: 20250710
  Receipt Date: 20250718
  Transmission Date: 20251020
  Serious: No
  Sender: ARGENX BVBA
  Company Number: CN-ARGENX-2025-ARGX-CN008951

PATIENT

DRUGS (2)
  1. EFGARTIGIMOD ALFA [Suspect]
     Active Substance: EFGARTIGIMOD ALFA
     Indication: Myasthenia gravis
     Dosage: 10 MG/KG, 1/WEEK, 1-H INFUSION IN CYCLES OF FOUR WEEKLY INFUSIONS
     Route: 042
     Dates: start: 202309
  2. RITUXIMAB [Concomitant]
     Active Substance: RITUXIMAB
     Indication: Product used for unknown indication
     Route: 065

REACTIONS (1)
  - No adverse event [Unknown]
